FAERS Safety Report 12759750 (Version 14)
Quarter: 2017Q2

REPORT INFORMATION
  Report Type: Spontaneous
  Country: US (occurrence: US)
  Receive Date: 20160919
  Receipt Date: 20170502
  Transmission Date: 20170830
  Serious: Yes (Death, Congenital Anomaly, Other)
  Sender: FDA-Public Use
  Company Number: PHEH2016US023315

PATIENT
  Sex: Female

DRUGS (3)
  1. ZOFRAN [Suspect]
     Active Substance: ONDANSETRON HYDROCHLORIDE
     Indication: FOETAL EXPOSURE DURING PREGNANCY
     Dosage: MOTHER DOSE: 04 MG, EVERY 08 HOURS (Q8H)
     Route: 064
  2. ONDANSETRON TEVA [Suspect]
     Active Substance: ONDANSETRON
     Indication: FOETAL EXPOSURE DURING PREGNANCY
     Dosage: MOTHER DOSE: 4 MG UNK
     Route: 064
  3. ONDANSETRON. [Suspect]
     Active Substance: ONDANSETRON
     Indication: FOETAL EXPOSURE DURING PREGNANCY
     Dosage: MOTHER DOSE: 4 MG, UNK
     Route: 064

REACTIONS (43)
  - Mitral valve atresia [Unknown]
  - Microcephaly [Unknown]
  - Developmental delay [Unknown]
  - Hypoplastic left heart syndrome [Unknown]
  - Hypogammaglobulinaemia [Unknown]
  - Chylothorax [Not Recovered/Not Resolved]
  - Cyanosis neonatal [Unknown]
  - Atelectasis neonatal [Unknown]
  - Tricuspid valve incompetence [Unknown]
  - Neonatal hypotension [Unknown]
  - Cardiac murmur [Unknown]
  - Injury [Unknown]
  - Pain [Unknown]
  - Diaphragmatic paralysis [Unknown]
  - Pneumothorax [Unknown]
  - Small for dates baby [Unknown]
  - Pulmonary artery stenosis congenital [Unknown]
  - Pleural effusion [Unknown]
  - Pulmonary oedema neonatal [Unknown]
  - Hypokalaemia [Unknown]
  - Hypoalbuminaemia [Unknown]
  - Renal failure [Unknown]
  - Heart disease congenital [Fatal]
  - Foetal exposure during pregnancy [Unknown]
  - Hyponatraemia [Unknown]
  - Hypovolaemia [Unknown]
  - Metabolic alkalosis [Unknown]
  - Emotional distress [Unknown]
  - Malnutrition [Not Recovered/Not Resolved]
  - Neonatal respiratory distress syndrome [Not Recovered/Not Resolved]
  - Lower gastrointestinal haemorrhage [Unknown]
  - Neonatal tachycardia [Unknown]
  - Anxiety [Unknown]
  - Post procedural complication [Fatal]
  - Congenital aortic atresia [Unknown]
  - Urinary tract infection neonatal [Unknown]
  - Generalised oedema [Unknown]
  - Congenital anomaly [Unknown]
  - Patent ductus arteriosus [Unknown]
  - Atrial septal defect [Unknown]
  - Dysmorphism [Unknown]
  - Right ventricular dysfunction [Unknown]
  - Cardiomegaly [Unknown]
